FAERS Safety Report 4846547-5 (Version None)
Quarter: 2005Q4

REPORT INFORMATION
  Report Type: 
  Country: None (occurrence: None)
  Receive Date: 20051206
  Receipt Date: 20050825
  Transmission Date: 20060501
  Serious: Yes (Hospitalization)
  Sender: FDA-Public Use
  Company Number: DE-BOEHRINGER INGELHEIM PHARMACEUTICALS, INC.-2005-DE-03408DE

PATIENT
  Sex: Male
  Weight: 61 kg

DRUGS (2)
  1. TIPRANAVIR + RITONAVIR CO-ADMIN [Suspect]
     Indication: HIV INFECTION
     Dosage: TIPRANAVIR 1000 MG/RTV 400 MG
     Route: 048
     Dates: start: 20030903, end: 20050725
  2. AZT [Suspect]
     Indication: HIV INFECTION
     Route: 048
     Dates: start: 20050818, end: 20050822

REACTIONS (2)
  - CONDITION AGGRAVATED [None]
  - ENTEROCOLITIS [None]
